FAERS Safety Report 12293924 (Version 6)
Quarter: 2017Q1

REPORT INFORMATION
  Report Type: Spontaneous
  Country: US (occurrence: US)
  Receive Date: 20160422
  Receipt Date: 20170317
  Transmission Date: 20170428
  Serious: Yes (Other)
  Sender: FDA-Public Use
  Company Number: PHEH2016US009640

PATIENT
  Sex: Female
  Weight: 63.49 kg

DRUGS (2)
  1. ZOFRAN [Suspect]
     Active Substance: ONDANSETRON HYDROCHLORIDE
     Indication: VOMITING IN PREGNANCY
     Dosage: UNK
     Route: 048
  2. ZOFRAN ODT [Suspect]
     Active Substance: ONDANSETRON HYDROCHLORIDE
     Indication: PRODUCT USED FOR UNKNOWN INDICATION
     Dosage: 8 MG, Q8H
     Route: 048
     Dates: start: 20150211, end: 20150223

REACTIONS (13)
  - Chronic kidney disease [Unknown]
  - Blood disorder [Unknown]
  - Seizure [Unknown]
  - Emotional distress [Unknown]
  - Product use issue [Unknown]
  - Coronary artery disease [Unknown]
  - Hyperthermia malignant [Unknown]
  - Injury [Unknown]
  - Pain [Unknown]
  - Anxiety [Unknown]
  - Maternal exposure during pregnancy [Unknown]
  - Vulvovaginal candidiasis [Unknown]
  - Upper respiratory tract infection [Unknown]
